FAERS Safety Report 8110942-1 (Version None)
Quarter: 2012Q1

REPORT INFORMATION
  Report Type: 
  Country: None (occurrence: None)
  Receive Date: 20120203
  Receipt Date: 20110919
  Transmission Date: 20120608
  Serious: Yes (Hospitalization)
  Sender: FDA-Public Use
  Company Number: US-GLAXOSMITHKLINE-A0884290A

PATIENT
  Age: 22 Year
  Sex: Female

DRUGS (2)
  1. TRIVORA-21 [Concomitant]
     Indication: ORAL CONTRACEPTION
  2. LAMICTAL [Suspect]
     Indication: ANXIETY
     Route: 048
     Dates: start: 20081008, end: 20081016

REACTIONS (1)
  - STEVENS-JOHNSON SYNDROME [None]
